FAERS Safety Report 6283782-6 (Version None)
Quarter: 2009Q3

REPORT INFORMATION
  Report Type: 
  Country: None (occurrence: None)
  Receive Date: 20090724
  Receipt Date: 20090717
  Transmission Date: 20100115
  Serious: Yes (Other)
  Sender: FDA-Public Use
  Company Number: US-ASTRAZENECA-2009SE05093

PATIENT
  Age: 61 Year
  Sex: Male

DRUGS (4)
  1. BUPIVACAINE [Suspect]
     Indication: POSTOPERATIVE ANALGESIA
     Route: 008
  2. BUPIVACAINE [Suspect]
     Dosage: 0.075% AT 8 ML/H FOR 65 HOURS
     Route: 008
  3. LIDOCAINE [Suspect]
     Indication: POSTOPERATIVE ANALGESIA
     Route: 008
  4. PHENYTOIN [Concomitant]
     Indication: CONVULSION

REACTIONS (1)
  - COMPLEX PARTIAL SEIZURES [None]
